FAERS Safety Report 8422401-7 (Version None)
Quarter: 2012Q2

REPORT INFORMATION
  Report Type: 
  Country: None (occurrence: None)
  Receive Date: 20120608
  Receipt Date: 20120605
  Transmission Date: 20120825
  Serious: Yes (Life-Threatening, Hospitalization)
  Sender: FDA-Public Use
  Company Number: PHEH2012US009497

PATIENT
  Sex: Female

DRUGS (15)
  1. ABILIFY [Concomitant]
     Dosage: 10 MG, DAILY
  2. HYDROCODONE [Concomitant]
     Indication: PAIN
     Dosage: 1 DF, EVERY SIX HOURS AS NEEDED FOR PAIN
  3. PERCOCET [Concomitant]
     Route: 048
  4. ALBUTEROL [Concomitant]
  5. BUPROPION HCL [Concomitant]
     Dosage: 100 MG, TID
  6. VITAMIN D [Concomitant]
     Dosage: 4000 U, DAILY
  7. ASMANEX TWISTHALER [Concomitant]
  8. NICOTINE [Concomitant]
     Dosage: 21 MG, DAILY
  9. GILENYA [Suspect]
     Indication: MULTIPLE SCLEROSIS
     Dosage: 0.5 MG, QD
     Route: 048
     Dates: start: 20120329, end: 20120421
  10. CARBAMAZEPINE [Concomitant]
     Dosage: 200 MG, BID
  11. NEXIUM [Concomitant]
     Dosage: 40 MG, DAILY
  12. FLUOXETINE [Concomitant]
     Dosage: 60 MG, DAILY
  13. LEVOTHYROXINE SODIUM [Concomitant]
     Dosage: 200 UG, DAILY
  14. VESICARE [Concomitant]
     Dosage: 10 MG, DAILY
  15. CLOTRIMAZOLE [Concomitant]

REACTIONS (21)
  - RESPIRATORY FAILURE [None]
  - PNEUMONIA [None]
  - ACUTE RESPIRATORY DISTRESS SYNDROME [None]
  - HEADACHE [None]
  - WHITE BLOOD CELL COUNT INCREASED [None]
  - HYPOTENSION [None]
  - COUGH [None]
  - TONGUE DRY [None]
  - CD4 LYMPHOCYTES INCREASED [None]
  - DYSPNOEA [None]
  - CYANOSIS [None]
  - LUNG INFILTRATION [None]
  - HYPOXIA [None]
  - PULMONARY OEDEMA [None]
  - OXYGEN CONSUMPTION INCREASED [None]
  - BLOOD GLUCOSE INCREASED [None]
  - LUNG INFECTION [None]
  - SINUS TACHYCARDIA [None]
  - BACTERIAL INFECTION [None]
  - HEART RATE DECREASED [None]
  - TENSION [None]
